FAERS Safety Report 7153755-X (Version None)
Quarter: 2010Q4

REPORT INFORMATION
  Report Type: 
  Country: None (occurrence: None)
  Receive Date: 20101213
  Receipt Date: 20101026
  Transmission Date: 20110411
  Serious: No
  Sender: FDA-Public Use
  Company Number: US-ABBOTT-10P-163-0681486-00

PATIENT
  Sex: Female
  Weight: 65.83 kg

DRUGS (5)
  1. MERIDIA [Suspect]
     Indication: WEIGHT DECREASED
     Dates: start: 20100827, end: 20101001
  2. WELLBUTRIN [Concomitant]
     Indication: DEPRESSION
  3. CELEBREX [Concomitant]
     Indication: PAIN
  4. TRAZODONE HCL [Concomitant]
     Indication: POOR QUALITY SLEEP
  5. UNKNOWN ANTIHISTAMINS [Concomitant]
     Indication: POOR QUALITY SLEEP

REACTIONS (1)
  - DRUG INEFFECTIVE [None]
